FAERS Safety Report 4439490-7 (Version None)
Quarter: 2004Q3

REPORT INFORMATION
  Report Type: 
  Country: None (occurrence: None)
  Receive Date: 20040830
  Receipt Date: 20040816
  Transmission Date: 20050211
  Serious: Yes (Life-Threatening, Hospitalization)
  Sender: FDA-Public Use
  Company Number: 2004057129

PATIENT
  Age: 28 Year
  Sex: Female
  Weight: 58 kg

DRUGS (8)
  1. NEURONTIN [Suspect]
     Indication: PAIN
     Dosage: 1800 MG (600 MG, 3 IN 1 D), ORAL
     Route: 048
     Dates: start: 20030201, end: 20040312
  2. UDRAMIL (TRANDOLAPRIL, VERAPAMIL HYDROCHLORIDE) [Suspect]
     Indication: ILL-DEFINED DISORDER
     Dosage: 1 IN 1 D, ORAL
     Route: 048
  3. TORSEMIDE [Suspect]
     Indication: ILL-DEFINED DISORDER
     Dosage: 10 MG (10 MG, 1 IN 1 D), ORAL
     Route: 048
  4. CLINDAMYCIN HYDROCHLORIDE [Suspect]
     Indication: ILL-DEFINED DISORDER
     Dates: start: 20040312, end: 20040313
  5. IRBESARTAN (IRBESARTAN) [Concomitant]
  6. MOXONIDINE (MOXONIDINE) [Concomitant]
  7. INSULIN [Concomitant]
  8. ISOPHANE INSULIN [Concomitant]

REACTIONS (8)
  - ESSENTIAL HYPERTENSION [None]
  - GASTRIC DISORDER [None]
  - GENERALISED OEDEMA [None]
  - GRAND MAL CONVULSION [None]
  - HEPATIC ENZYME INCREASED [None]
  - PULMONARY OEDEMA [None]
  - TACHYCARDIA [None]
  - TACHYPNOEA [None]
